FAERS Safety Report 9670850 (Version 1)
Quarter: 2013Q4

REPORT INFORMATION
  Report Type: Report from Study
  Country: KR (occurrence: KR)
  Receive Date: 20131106
  Receipt Date: 20131106
  Transmission Date: 20140711
  Serious: No
  Sender: FDA-Public Use
  Company Number: PHHY2013KR124402

PATIENT
  Age: 67 Year
  Sex: Male

DRUGS (8)
  1. AMN107 [Suspect]
     Indication: CHRONIC MYELOID LEUKAEMIA
     Dosage: 600 MG PER DAY
     Route: 048
     Dates: start: 20130111, end: 20130521
  2. PREDNICARBATE [Concomitant]
     Indication: HERPES ZOSTER
     Dosage: 60 G, UNK
     Route: 061
     Dates: start: 20130315, end: 20130522
  3. AZEPTIN [Concomitant]
     Indication: HERPES ZOSTER
     Dosage: 1 MG, UNK
     Route: 048
     Dates: start: 20130315, end: 20130522
  4. ACIFOL//FOLIC ACID [Concomitant]
     Indication: FOLATE DEFICIENCY
     Dosage: 1 MG, UNK
     Route: 048
     Dates: start: 20130307
  5. AMARYL M [Concomitant]
     Indication: TYPE 2 DIABETES MELLITUS
     Route: 048
     Dates: start: 20070920
  6. MEGESTROL ACETATE [Concomitant]
     Indication: WEIGHT DECREASED
     Dosage: 5.2 ML, UNK
     Route: 048
     Dates: start: 20130118, end: 20130131
  7. TYRENOL [Concomitant]
     Indication: MYALGIA
     Dosage: 1950 MG, UNK
     Route: 048
     Dates: start: 20130118
  8. ASACOL [Concomitant]
     Indication: COLITIS ULCERATIVE
     Dosage: 2400 MG, UNK
     Route: 048
     Dates: start: 20130307

REACTIONS (5)
  - Decreased appetite [Recovered/Resolved]
  - Alopecia [Recovered/Resolved]
  - Upper respiratory tract infection [Recovered/Resolved]
  - Visual acuity reduced [Recovered/Resolved]
  - Alanine aminotransferase increased [Recovered/Resolved]
